FAERS Safety Report 18477174 (Version 1)
Quarter: 2020Q4

REPORT INFORMATION
  Report Type: Spontaneous
  Country: US (occurrence: US)
  Receive Date: 20201107
  Receipt Date: 20201107
  Transmission Date: 20210114
  Serious: No
  Sender: FDA-Public Use
  Company Number: US-PERRIGO-20US002673

PATIENT
  Age: 76 Year
  Sex: Female
  Weight: 57.6 kg

DRUGS (2)
  1. MULTIVITAMINS, PLAIN [Concomitant]
     Active Substance: VITAMINS
     Indication: SUPPLEMENTATION THERAPY
     Dosage: UNK
     Route: 065
  2. ERYTHROMYCIN. [Suspect]
     Active Substance: ERYTHROMYCIN
     Indication: DACRYOSTENOSIS CONGENITAL
     Dosage: THIN RIBBON, QD TO BID
     Route: 047
     Dates: start: 20200131, end: 20200213

REACTIONS (5)
  - Off label use [Recovered/Resolved]
  - Blepharitis [Recovering/Resolving]
  - Erythema of eyelid [Recovered/Resolved]
  - Eye inflammation [Recovering/Resolving]
  - Ocular hyperaemia [Recovering/Resolving]

NARRATIVE: CASE EVENT DATE: 20200131
